FAERS Safety Report 15897711 (Version 2)
Quarter: 2019Q1

REPORT INFORMATION
  Report Type: Spontaneous
  Country: FR (occurrence: FR)
  Receive Date: 20190131
  Receipt Date: 20190207
  Transmission Date: 20190417
  Serious: Yes (Death)
  Sender: FDA-Public Use
  Company Number: FR-ABBVIE-19K-056-2647004-00

PATIENT
  Age: 63 Year
  Sex: Male

DRUGS (1)
  1. VENCLYXTO [Suspect]
     Active Substance: VENETOCLAX
     Indication: MANTLE CELL LYMPHOMA
     Route: 048
     Dates: start: 20181126, end: 20181222

REACTIONS (3)
  - Off label use [Recovered/Resolved]
  - Death [Fatal]
  - Gout [Unknown]

NARRATIVE: CASE EVENT DATE: 20181126
